FAERS Safety Report 8019570-X (Version None)
Quarter: 2012Q1

REPORT INFORMATION
  Report Type: 
  Country: None (occurrence: None)
  Receive Date: 20120103
  Receipt Date: 20111229
  Transmission Date: 20120608
  Serious: Yes (Other)
  Sender: FDA-Public Use
  Company Number: PHHY2011AR17459

PATIENT
  Sex: Male

DRUGS (2)
  1. DIOVAN [Suspect]
     Dosage: 0.5 DF (320 MG),
  2. DIOVAN [Suspect]
     Indication: HYPERTENSION
     Dosage: 1 DF (160 MG), DAILY

REACTIONS (5)
  - CHEST DISCOMFORT [None]
  - WRONG TECHNIQUE IN DRUG USAGE PROCESS [None]
  - BLOOD PRESSURE INADEQUATELY CONTROLLED [None]
  - PRODUCT SUBSTITUTION ISSUE [None]
  - COUGH [None]
